FAERS Safety Report 8012804-7 (Version None)
Quarter: 2011Q4

REPORT INFORMATION
  Report Type: 
  Country: None (occurrence: None)
  Receive Date: 20111223
  Receipt Date: 20111007
  Transmission Date: 20120403
  Serious: Yes (Hospitalization)
  Sender: FDA-Public Use
  Company Number: CRC-11-250

PATIENT
  Age: 54 Year
  Sex: Male

DRUGS (3)
  1. OCTREOTIDE ACETATE [Suspect]
     Indication: HAEMATEMESIS
     Dosage: 50 MCG BOLUS+50MCG/HR; IV
     Route: 042
  2. OCTREOTIDE ACETATE [Suspect]
     Indication: VARICES OESOPHAGEAL
     Dosage: 50 MCG BOLUS+50MCG/HR; IV
     Route: 042
  3. SEE IMAGE [Concomitant]

REACTIONS (1)
  - THROMBOCYTOPENIA [None]
